FAERS Safety Report 11665238 (Version 1)
Quarter: 2015Q4

REPORT INFORMATION
  Report Type: Spontaneous
  Country: IT (occurrence: IT)
  Receive Date: 20151027
  Receipt Date: 20151027
  Transmission Date: 20160304
  Serious: Yes (Other)
  Sender: FDA-Public Use
  Company Number: IT-ASTRAZENECA-2015SF02608

PATIENT
  Age: 38 Year
  Sex: Male

DRUGS (2)
  1. BYETTA [Suspect]
     Active Substance: EXENATIDE
     Route: 065
  2. BYETTA [Suspect]
     Active Substance: EXENATIDE
     Dosage: EXENATIDE
     Route: 065

REACTIONS (2)
  - Hypoglycaemia [Unknown]
  - Glycosylated haemoglobin increased [Unknown]
